FAERS Safety Report 21634467 (Version 1)
Quarter: 2022Q4

REPORT INFORMATION
  Report Type: Spontaneous
  Country: CN (occurrence: CN)
  Receive Date: 20221123
  Receipt Date: 20221123
  Transmission Date: 20230113
  Serious: Yes (Hospitalization, Other)
  Sender: FDA-Public Use
  Company Number: CN-PFIZER INC-PV202200107197

PATIENT
  Age: 5 Year
  Sex: Male
  Weight: 17 kg

DRUGS (2)
  1. METHOTREXATE SODIUM [Suspect]
     Active Substance: METHOTREXATE SODIUM
     Indication: Acute lymphocytic leukaemia
     Dosage: 2.12 G, 1X/DAY  (1600 ML OF 4:1 GLUCOSE SODIUM CHLORIDE INJECTION PLUS 2.12G OF METHOTREXATE)
     Route: 041
     Dates: start: 20221026, end: 20221026
  2. DEXTROSE\SODIUM CHLORIDE [Concomitant]
     Active Substance: DEXTROSE\SODIUM CHLORIDE
     Dosage: UNK, 1X/DAY (1600 ML OF 4:1 GLUCOSE SODIUM CHLORIDE INJECTION PLUS 2.12G OF METHOTREXATE
     Route: 041
     Dates: start: 20221026, end: 20221026

REACTIONS (4)
  - Renal impairment [Recovering/Resolving]
  - Toxicity to various agents [Unknown]
  - Blood test abnormal [Unknown]
  - Blood creatinine increased [Recovering/Resolving]

NARRATIVE: CASE EVENT DATE: 20221028
